FAERS Safety Report 14789641 (Version 1)
Quarter: 2018Q2

REPORT INFORMATION
  Report Type: Spontaneous
  Country: US (occurrence: US)
  Receive Date: 20180423
  Receipt Date: 20180423
  Transmission Date: 20180711
  Serious: Yes (Hospitalization, Other)
  Sender: FDA-Public Use
  Company Number: US-SUN PHARMACEUTICAL INDUSTRIES LTD-2018US-170487

PATIENT
  Sex: Male

DRUGS (1)
  1. LOPERAMIDE [Suspect]
     Active Substance: LOPERAMIDE
     Indication: WITHDRAWAL SYNDROME
     Dosage: UNK
     Route: 048

REACTIONS (5)
  - Drug withdrawal syndrome [Recovering/Resolving]
  - Intentional product misuse [Recovering/Resolving]
  - Overdose [Recovering/Resolving]
  - Electrocardiogram QT prolonged [Recovering/Resolving]
  - Electrocardiogram QRS complex prolonged [Recovering/Resolving]
